FAERS Safety Report 10273896 (Version 1)
Quarter: 2014Q3

REPORT INFORMATION
  Report Type: Spontaneous
  Country: US (occurrence: US)
  Receive Date: 20140702
  Receipt Date: 20140702
  Transmission Date: 20150326
  Serious: Yes (Other)
  Sender: FDA-Public Use
  Company Number: US-NOVOPROD-414643

PATIENT

DRUGS (1)
  1. VICTOZA [Suspect]
     Active Substance: LIRAGLUTIDE
     Indication: NON-ALCOHOLIC STEATOHEPATITIS
     Dosage: UNKNOWN
     Route: 058

REACTIONS (2)
  - Off label use [Unknown]
  - Hepatic cancer [Unknown]
